FAERS Safety Report 11412464 (Version 1)
Quarter: 2015Q3

REPORT INFORMATION
  Report Type: Spontaneous
  Country: US (occurrence: US)
  Receive Date: 20150824
  Receipt Date: 20150824
  Transmission Date: 20151125
  Serious: No
  Sender: FDA-Public Use
  Company Number: US-JNJFOC-20150812071

PATIENT
  Age: 63 Year
  Sex: Male

DRUGS (2)
  1. MENS ROGAINE EXTRA STRENGTH [Suspect]
     Active Substance: MINOXIDIL
     Indication: PRODUCT USE ISSUE
     Dosage: MORE THAN A HALF CAPFUL, 3-4 DAYS, SINCE 2012 AND 2013
     Route: 061
  2. MENS ROGAINE EXTRA STRENGTH [Suspect]
     Active Substance: MINOXIDIL
     Route: 061

REACTIONS (5)
  - Inappropriate schedule of drug administration [Unknown]
  - Product packaging issue [Unknown]
  - Hair texture abnormal [Unknown]
  - Product use issue [Unknown]
  - Incorrect dose administered [Unknown]
